FAERS Safety Report 5787060-0 (Version None)
Quarter: 2008Q2

REPORT INFORMATION
  Report Type: 
  Country: None (occurrence: None)
  Receive Date: 20080623
  Receipt Date: 20080623
  Transmission Date: 20081010
  Serious: No
  Sender: FDA-Public Use
  Company Number: None

PATIENT
  Sex: Female
  Weight: 58.9676 kg

DRUGS (2)
  1. FOCALIN [Suspect]
     Indication: ATTENTION DEFICIT/HYPERACTIVITY DISORDER
     Dosage: 1 TABLET DAILY PO
     Route: 048
     Dates: start: 20060108, end: 20070515
  2. DAYTRANA [Suspect]
     Indication: ATTENTION DEFICIT/HYPERACTIVITY DISORDER
     Dosage: 1 PATCH DAILY TRANSDERMAL
     Route: 062
     Dates: start: 20070130, end: 20070606

REACTIONS (12)
  - APPLICATION SITE DISCOMFORT [None]
  - APPLICATION SITE INFLAMMATION [None]
  - APPLICATION SITE IRRITATION [None]
  - DEPRESSED MOOD [None]
  - DEPRESSION [None]
  - DISTURBANCE IN SOCIAL BEHAVIOUR [None]
  - FATIGUE [None]
  - HEART RATE INCREASED [None]
  - IMPULSIVE BEHAVIOUR [None]
  - MOOD ALTERED [None]
  - SCAR [None]
  - SOCIAL AVOIDANT BEHAVIOUR [None]
